FAERS Safety Report 9587676 (Version 2)
Quarter: 2013Q4

REPORT INFORMATION
  Report Type: Spontaneous
  Country: US (occurrence: US)
  Receive Date: 20131003
  Receipt Date: 20131014
  Transmission Date: 20140711
  Serious: Yes (Other)
  Sender: FDA-Public Use
  Company Number: US-PFIZER INC-2013279439

PATIENT
  Sex: Female

DRUGS (4)
  1. IBUPROFEN [Suspect]
     Dosage: UNK
  2. NAPROXEN SODIUM [Suspect]
     Dosage: UNK
  3. MOTRIN [Suspect]
     Dosage: UNK
  4. ASPIRIN [Suspect]
     Dosage: UNK

REACTIONS (2)
  - Overdose [Unknown]
  - Drug hypersensitivity [Unknown]
